FAERS Safety Report 9105529 (Version 1)
Quarter: 2013Q1

REPORT INFORMATION
  Report Type: Spontaneous
  Country: GB (occurrence: GB)
  Receive Date: 20130220
  Receipt Date: 20130220
  Transmission Date: 20140127
  Serious: Yes (Other)
  Sender: FDA-Public Use
  Company Number: GB-TEVA-386595ISR

PATIENT
  Age: 46 Year
  Sex: Male
  Weight: 86 kg

DRUGS (3)
  1. BISOPROLOL [Suspect]
     Indication: HYPERTENSION
     Dosage: 2 X 5 MG ONCE PER DAY
     Route: 048
     Dates: start: 20130114
  2. RAMIPRIL [Concomitant]
  3. DOXAZOSIN [Concomitant]
     Dosage: 2 X 2MG DAILY

REACTIONS (5)
  - Dementia [Unknown]
  - Amnesia [Not Recovered/Not Resolved]
  - Disturbance in attention [Not Recovered/Not Resolved]
  - Dissociation [Not Recovered/Not Resolved]
  - Flat affect [Not Recovered/Not Resolved]
